FAERS Safety Report 8162376-1 (Version None)
Quarter: 2012Q1

REPORT INFORMATION
  Report Type: 
  Country: None (occurrence: None)
  Receive Date: 20120224
  Receipt Date: 20120213
  Transmission Date: 20120608
  Serious: Yes (Other)
  Sender: FDA-Public Use
  Company Number: TW-ELI_LILLY_AND_COMPANY-TW201202003709

PATIENT
  Age: 58 Year
  Sex: Female

DRUGS (1)
  1. EVISTA [Suspect]
     Indication: OSTEOPOROSIS
     Dosage: UNK

REACTIONS (2)
  - BREAST CANCER STAGE I [None]
  - DRUG DOSE OMISSION [None]
